FAERS Safety Report 9695663 (Version 3)
Quarter: 2014Q2

REPORT INFORMATION
  Report Type: Spontaneous
  Country: US (occurrence: US)
  Receive Date: 20131119
  Receipt Date: 20140530
  Transmission Date: 20141212
  Serious: Yes (Other)
  Sender: FDA-Public Use
  Company Number: US-PFIZER INC-2013325711

PATIENT
  Age: 40 Year
  Sex: Male

DRUGS (2)
  1. SUTENT [Suspect]
     Indication: THYROID CANCER
     Dosage: 50 MG, TAKE ONE DAILY
     Route: 048
     Dates: start: 20130221
  2. SUTENT [Suspect]
     Dosage: 50 MG, CYCLIC (QD X 14 DAYS ON, 7 OFF)
     Route: 048
     Dates: start: 20130516

REACTIONS (4)
  - Weight increased [Unknown]
  - Arthralgia [Unknown]
  - Blister [Unknown]
  - Off label use [Unknown]
